FAERS Safety Report 22060194 (Version 1)
Quarter: 2023Q1

REPORT INFORMATION
  Report Type: Spontaneous
  Country: US (occurrence: US)
  Receive Date: 20230303
  Receipt Date: 20230303
  Transmission Date: 20230418
  Serious: Yes (Death)
  Sender: FDA-Public Use
  Company Number: US-PFIZER INC-202300088508

PATIENT
  Age: 77 Year
  Sex: Female
  Weight: 58.97 kg

DRUGS (5)
  1. IBRANCE [Suspect]
     Active Substance: PALBOCICLIB
     Indication: Breast cancer female
     Dosage: 1 DF, 1X/DAY (UNKNOWN STRENGTH; ONE TABLET ONE TIME PER DAY BY MOUTH)
     Route: 048
     Dates: start: 20230119, end: 20230120
  2. MORPHINE [Concomitant]
     Active Substance: MORPHINE
     Indication: Pain
     Dosage: 0.5 UNK, 1X/DAY (LOW DOSAGE LIKE 0.5 AND TYPICALLY TOOK IT ONCE PER DAY)
  3. MORPHINE [Concomitant]
     Active Substance: MORPHINE
     Dosage: 0.5 UNK, 2X/DAY (SOMETIMES TWICE)
  4. MORPHINE [Concomitant]
     Active Substance: MORPHINE
     Dosage: UNK, 3X/DAY
  5. MORPHINE [Concomitant]
     Active Substance: MORPHINE
     Dosage: 0.5 UNK, 4X/DAY (4 TIMES PER DAY)

REACTIONS (1)
  - Neoplasm progression [Fatal]
